FAERS Safety Report 19123297 (Version 2)
Quarter: 2021Q2

REPORT INFORMATION
  Report Type: Spontaneous
  Country: DE (occurrence: DE)
  Receive Date: 20210412
  Receipt Date: 20210427
  Transmission Date: 20210717
  Serious: Yes (Hospitalization, Other)
  Sender: FDA-Public Use
  Company Number: DE-PFIZER INC-2021341302

PATIENT
  Age: 31 Year
  Sex: Male
  Weight: 80 kg

DRUGS (1)
  1. UNACID (AMPICILLIN SODIUM/SULBACTAM SODIUM) [Suspect]
     Active Substance: AMPICILLIN SODIUM\SULBACTAM SODIUM
     Indication: ABSCESS DRAINAGE
     Dosage: 3 G
     Route: 042
     Dates: start: 20170905, end: 20170908

REACTIONS (18)
  - Swelling face [Recovered/Resolved]
  - Pruritus [Recovered/Resolved]
  - Contraindicated product administered [Unknown]
  - Drug eruption [Unknown]
  - Cardiovascular disorder [Recovered/Resolved]
  - Dyspnoea [Recovered/Resolved]
  - Stevens-Johnson syndrome [Recovered/Resolved]
  - Muscle haemorrhage [Recovered/Resolved]
  - Nausea [Recovered/Resolved]
  - Chills [Unknown]
  - Dizziness [Recovered/Resolved]
  - Peripheral swelling [Recovered/Resolved]
  - Solar urticaria [Not Recovered/Not Resolved]
  - Pyrexia [Unknown]
  - Rash [Unknown]
  - Urticaria [Recovered/Resolved]
  - Skin exfoliation [Recovered/Resolved]
  - Skin discolouration [Recovered/Resolved]

NARRATIVE: CASE EVENT DATE: 201709
